FAERS Safety Report 25654573 (Version 2)
Quarter: 2025Q3

REPORT INFORMATION
  Report Type: Spontaneous
  Country: US (occurrence: US)
  Receive Date: 20250807
  Receipt Date: 20250910
  Transmission Date: 20251021
  Serious: No
  Sender: ROCHE
  Company Number: US-ROCHE-10000356037

PATIENT
  Age: 25 Year
  Sex: Male
  Weight: 75.9 kg

DRUGS (1)
  1. HEMLIBRA [Suspect]
     Active Substance: EMICIZUMAB-KXWH
     Indication: Factor VIII deficiency
     Route: 065
     Dates: start: 20211103

REACTIONS (2)
  - Mood swings [Recovered/Resolved]
  - Off label use [Unknown]
